FAERS Safety Report 7817025-6 (Version None)
Quarter: 2011Q4

REPORT INFORMATION
  Report Type: 
  Country: None (occurrence: None)
  Receive Date: 20111017
  Receipt Date: 20111003
  Transmission Date: 20120403
  Serious: Yes (Hospitalization)
  Sender: FDA-Public Use
  Company Number: NL-ELI_LILLY_AND_COMPANY-NL201109006718

PATIENT
  Sex: Female

DRUGS (1)
  1. CYMBALTA [Suspect]
     Indication: PAIN
     Dosage: 30 MG, UNK
     Dates: start: 20110825, end: 20110908

REACTIONS (17)
  - HICCUPS [None]
  - FLUID INTAKE REDUCED [None]
  - DISORIENTATION [None]
  - ENDOSCOPY UPPER GASTROINTESTINAL TRACT [None]
  - BODY TEMPERATURE INCREASED [None]
  - THROAT LESION [None]
  - FATIGUE [None]
  - OROPHARYNGEAL PAIN [None]
  - CRYING [None]
  - DEPRESSION [None]
  - DRY THROAT [None]
  - APHAGIA [None]
  - DYSPHAGIA [None]
  - PSYCHIATRIC SYMPTOM [None]
  - PHARYNGEAL ERYTHEMA [None]
  - HYPOPHAGIA [None]
  - ANXIETY [None]
